FAERS Safety Report 13739118 (Version 1)
Quarter: 2017Q3

REPORT INFORMATION
  Report Type: Spontaneous
  Country: US (occurrence: US)
  Receive Date: 20170710
  Receipt Date: 20170710
  Transmission Date: 20171127
  Serious: Yes (Other)
  Sender: FDA-Public Use
  Company Number: US-SAOL THERAPEUTICS-2017SAO00837

PATIENT
  Sex: Male
  Weight: 76.19 kg

DRUGS (1)
  1. COMPOUNDED BACLOFEN [Suspect]
     Active Substance: BACLOFEN
     Dosage: 699.4 ?G, \DAY
     Route: 037
     Dates: start: 20170202, end: 20170425

REACTIONS (2)
  - Implant site infection [Recovered/Resolved]
  - Skin erosion [Recovered/Resolved]
